FAERS Safety Report 14476074 (Version 1)
Quarter: 2018Q1

REPORT INFORMATION
  Report Type: Spontaneous
  Country: IT (occurrence: IT)
  Receive Date: 20180201
  Receipt Date: 20180201
  Transmission Date: 20180509
  Serious: Yes (Other)
  Sender: FDA-Public Use
  Company Number: IT-MYLANLABS-2018M1006606

PATIENT
  Age: 35 Year
  Sex: Male

DRUGS (2)
  1. NO DRUG NAME [Suspect]
     Active Substance: UNSPECIFIED INGREDIENT
     Indication: TOOTH ABSCESS
     Route: 048
     Dates: start: 20170924, end: 20170924
  2. BRUFEN [Suspect]
     Active Substance: IBUPROFEN
     Indication: PAIN
     Route: 048

REACTIONS (4)
  - Pruritus generalised [Recovering/Resolving]
  - Oxygen saturation decreased [Recovering/Resolving]
  - Erythema [Recovering/Resolving]
  - Palatal oedema [Recovering/Resolving]

NARRATIVE: CASE EVENT DATE: 20170924
